FAERS Safety Report 19020874 (Version 3)
Quarter: 2021Q2

REPORT INFORMATION
  Report Type: Spontaneous
  Country: CH (occurrence: CH)
  Receive Date: 20210317
  Receipt Date: 20210416
  Transmission Date: 20210717
  Serious: Yes (Hospitalization, Other)
  Sender: FDA-Public Use
  Company Number: CH-TAKEDA-2021TUS015179

PATIENT
  Sex: Male

DRUGS (5)
  1. REVESTIVE [Suspect]
     Active Substance: TEDUGLUTIDE
     Indication: PRODUCT USED FOR UNKNOWN INDICATION
     Dosage: 0.15 DOSAGE FORM
     Route: 065
     Dates: start: 20210112, end: 20210304
  2. REVESTIVE [Suspect]
     Active Substance: TEDUGLUTIDE
     Indication: PRODUCT USED FOR UNKNOWN INDICATION
     Dosage: 0.15 DOSAGE FORM
     Route: 065
     Dates: start: 20210112, end: 20210304
  3. NUTRITION 12 [Concomitant]
     Active Substance: IRON\MINERALS\VITAMINS
     Dosage: UNK
     Dates: end: 20191003
  4. REVESTIVE [Suspect]
     Active Substance: TEDUGLUTIDE
     Indication: PRODUCT USED FOR UNKNOWN INDICATION
     Dosage: 0.15 DOSAGE FORM
     Route: 065
     Dates: start: 20210112, end: 20210304
  5. REVESTIVE [Suspect]
     Active Substance: TEDUGLUTIDE
     Indication: PRODUCT USED FOR UNKNOWN INDICATION
     Dosage: 0.15 DOSAGE FORM
     Route: 065
     Dates: start: 20210112, end: 20210304

REACTIONS (10)
  - Intestinal obstruction [Unknown]
  - Obstructive pancreatitis [Recovered/Resolved]
  - Pancreatic duct stenosis [Unknown]
  - Lipase increased [Unknown]
  - Small intestinal stenosis [Unknown]
  - Pancreatitis [Recovered/Resolved]
  - Dehydration [Unknown]
  - Large intestine polyp [Unknown]
  - Flatulence [Unknown]
  - Large intestinal stenosis [Unknown]

NARRATIVE: CASE EVENT DATE: 20210304
